FAERS Safety Report 4416340-6 (Version None)
Quarter: 2004Q3

REPORT INFORMATION
  Report Type: 
  Country: None (occurrence: None)
  Receive Date: 20040805
  Receipt Date: 20040628
  Transmission Date: 20050211
  Serious: Yes (Death)
  Sender: FDA-Public Use
  Company Number: JP-ROCHE-372431

PATIENT
  Age: 17 Year
  Sex: Male

DRUGS (5)
  1. TAMIFLU [Suspect]
     Dosage: LAST DOSE AFTER LUNCH
     Route: 048
     Dates: start: 20040205, end: 20040205
  2. SYMMETREL [Suspect]
     Dosage: LAST DOSE IN AM
     Route: 048
     Dates: start: 20040204, end: 20040205
  3. PASETOCIN [Concomitant]
     Dosage: LAST DOSE AFTER LUNCH
     Route: 048
     Dates: start: 20040204, end: 20040205
  4. DASEN [Concomitant]
     Dosage: LAST DOSE AFTER LUNCH
     Route: 048
     Dates: start: 20040204, end: 20040205
  5. MUCOSOLVAN [Concomitant]
     Dosage: LAST DOSE AFTER LUNCH
     Route: 048
     Dates: start: 20040204, end: 20040205

REACTIONS (5)
  - ABNORMAL BEHAVIOUR [None]
  - CHEST INJURY [None]
  - COMPLETED SUICIDE [None]
  - ROAD TRAFFIC ACCIDENT [None]
  - SHOCK [None]
